FAERS Safety Report 4409919-9 (Version None)
Quarter: 2004Q3

REPORT INFORMATION
  Report Type: 
  Country: None (occurrence: None)
  Receive Date: 20040728
  Receipt Date: 20040608
  Transmission Date: 20050211
  Serious: Yes (Other)
  Sender: FDA-Public Use
  Company Number: FR-GLAXOSMITHKLINE-B0336008A

PATIENT
  Age: 48 Year
  Sex: Female
  Weight: 57 kg

DRUGS (4)
  1. PAROXETINE HCL [Suspect]
     Indication: DEPRESSION
     Route: 048
     Dates: start: 20031103
  2. NUREFLEX [Concomitant]
     Indication: PAIN
     Dosage: 400MG THREE TIMES PER DAY
     Route: 048
     Dates: start: 20031103
  3. DIANTALVIC [Concomitant]
     Indication: PAIN
     Route: 048
     Dates: start: 20031125
  4. FORLAX [Concomitant]
     Indication: CONSTIPATION
     Dates: start: 20030127

REACTIONS (1)
  - NEUTROPENIA [None]
